FAERS Safety Report 5657441-4 (Version None)
Quarter: 2008Q1

REPORT INFORMATION
  Report Type: 
  Country: None (occurrence: None)
  Receive Date: 20080310
  Receipt Date: 20080228
  Transmission Date: 20080703
  Serious: Yes (Other)
  Sender: FDA-Public Use
  Company Number: ES-PFIZER INC-2008018199

PATIENT
  Age: 24 Year
  Sex: Female

DRUGS (1)
  1. PROGEVERA [Suspect]
     Indication: POLYCYSTIC OVARIES
     Dosage: DAILY DOSE:10MG-TEXT:DAILY
     Route: 048
     Dates: start: 20070420, end: 20070427

REACTIONS (1)
  - HEPATITIS ACUTE [None]
